FAERS Safety Report 6046003-5 (Version None)
Quarter: 2009Q1

REPORT INFORMATION
  Report Type: 
  Country: None (occurrence: None)
  Receive Date: 20090116
  Receipt Date: 20090106
  Transmission Date: 20090719
  Serious: Yes (Death, Hospitalization, Disabling, Other)
  Sender: FDA-Public Use
  Company Number: 55777

PATIENT
  Age: 14 Year
  Sex: Male

DRUGS (2)
  1. METHOTREXATE [Suspect]
     Indication: ACUTE LYMPHOCYTIC LEUKAEMIA
     Dosage: INTRATHECAL
     Route: 037
  2. CYTARABINE [Suspect]

REACTIONS (10)
  - CARDIAC ARREST [None]
  - DISORIENTATION [None]
  - ENCEPHALOPATHY [None]
  - HYPOREFLEXIA [None]
  - LABILE BLOOD PRESSURE [None]
  - MUSCULAR WEAKNESS [None]
  - PARAESTHESIA [None]
  - SENSORY DISTURBANCE [None]
  - SUDDEN DEATH [None]
  - UNRESPONSIVE TO STIMULI [None]
